FAERS Safety Report 5096414-X (Version None)
Quarter: 2006Q3

REPORT INFORMATION
  Report Type: 
  Country: None (occurrence: None)
  Receive Date: 20060831
  Receipt Date: 20060822
  Transmission Date: 20061208
  Serious: Yes (Other)
  Sender: FDA-Public Use
  Company Number: 2006102599

PATIENT
  Sex: Male

DRUGS (1)
  1. LIPITOR [Suspect]
     Indication: CORONARY ARTERY OCCLUSION
     Dosage: 10 MG, 1 IN 1 D
     Dates: start: 20060101

REACTIONS (1)
  - BLOOD TRIGLYCERIDES INCREASED [None]
